FAERS Safety Report 8168752-5 (Version None)
Quarter: 2012Q1

REPORT INFORMATION
  Report Type: 
  Country: None (occurrence: None)
  Receive Date: 20120227
  Receipt Date: 20120222
  Transmission Date: 20120608
  Serious: No
  Sender: FDA-Public Use
  Company Number: US-PFIZER INC-2012042531

PATIENT
  Sex: Female
  Weight: 68.027 kg

DRUGS (6)
  1. CHANTIX [Suspect]
     Indication: SMOKING CESSATION THERAPY
     Dosage: 0.5 MG, 1X/DAY
     Route: 048
     Dates: start: 20120208, end: 20120201
  2. XANAX [Concomitant]
     Indication: STRESS
     Dosage: UNK
  3. CHANTIX [Suspect]
     Dosage: 1 MG, 2X/DAY
     Route: 048
  4. DIOVAN [Concomitant]
     Indication: HYPERTENSION
     Dosage: UNK
  5. CHANTIX [Suspect]
     Dosage: UNK
     Route: 048
     Dates: start: 20120201, end: 20120201
  6. PROZAC [Concomitant]
     Indication: HYPERTENSION
     Dosage: UNK

REACTIONS (5)
  - ANGER [None]
  - EMOTIONAL DISORDER [None]
  - STRESS [None]
  - BRUXISM [None]
  - TOBACCO WITHDRAWAL SYMPTOMS [None]
